FAERS Safety Report 12156799 (Version 2)
Quarter: 2016Q1

REPORT INFORMATION
  Report Type: Spontaneous
  Country: US (occurrence: US)
  Receive Date: 20160307
  Receipt Date: 20160325
  Transmission Date: 20160526
  Serious: Yes (Hospitalization)
  Sender: FDA-Public Use
  Company Number: US-TARO-2016TAR00197

PATIENT
  Age: 87 Year
  Sex: Female
  Weight: 58.96 kg

DRUGS (7)
  1. WARFARIN SODIUM TABLETS USP 2MG [Suspect]
     Active Substance: WARFARIN SODIUM
     Dosage: 6 MG, EVERY 48 HOURS
     Route: 048
  2. WARFARIN SODIUM TABLETS USP 2MG [Suspect]
     Active Substance: WARFARIN SODIUM
     Dosage: 2 MG, EVERY 48 HOURS
  3. WARFARIN SODIUM TABLETS USP 2MG [Suspect]
     Active Substance: WARFARIN SODIUM
     Dosage: 4 MG, 1X/DAY
     Route: 048
     Dates: start: 20160314
  4. WARFARIN SODIUM TABLETS USP 4MG [Suspect]
     Active Substance: WARFARIN SODIUM
     Dosage: 4 MG, EVERY 48 HOURS
  5. WARFARIN SODIUM TABLETS USP 4MG [Suspect]
     Active Substance: WARFARIN SODIUM
     Dosage: 4 MG, 1X/DAY
     Route: 048
     Dates: start: 20160314
  6. WARFARIN SODIUM TABLETS USP 2MG [Suspect]
     Active Substance: WARFARIN SODIUM
     Indication: ATRIAL FIBRILLATION
     Dosage: UNK
  7. WARFARIN SODIUM TABLETS USP 4MG [Suspect]
     Active Substance: WARFARIN SODIUM
     Indication: ATRIAL FIBRILLATION
     Dosage: UNK

REACTIONS (6)
  - International normalised ratio decreased [Unknown]
  - Malaise [Not Recovered/Not Resolved]
  - Drug ineffective [Unknown]
  - Pleural effusion [Recovered/Resolved]
  - Incorrect product storage [Unknown]
  - Arterial occlusive disease [Recovered/Resolved]

NARRATIVE: CASE EVENT DATE: 201509
